FAERS Safety Report 21018123 (Version 2)
Quarter: 2022Q3

REPORT INFORMATION
  Report Type: Spontaneous
  Country: IL (occurrence: IL)
  Receive Date: 20220628
  Receipt Date: 20220701
  Transmission Date: 20221027
  Serious: Yes (Hospitalization)
  Sender: FDA-Public Use
  Company Number: IL-BAYER-2022P005428

PATIENT
  Age: 73 Year
  Sex: Male

DRUGS (4)
  1. DAROLUTAMIDE [Suspect]
     Active Substance: DAROLUTAMIDE
     Indication: Hormone-dependent prostate cancer
     Dosage: UNK
     Dates: start: 202206
  2. DAROLUTAMIDE [Suspect]
     Active Substance: DAROLUTAMIDE
     Indication: Metastasis
  3. ELIQUIS [Concomitant]
     Active Substance: APIXABAN
     Indication: Atrial fibrillation
  4. BISOPROLOL FUMARATE [Concomitant]
     Active Substance: BISOPROLOL FUMARATE

REACTIONS (14)
  - Dizziness [None]
  - Non-cardiac chest pain [None]
  - Chest discomfort [None]
  - Dehydration [None]
  - Pain in extremity [None]
  - Hypotension [None]
  - Oedema peripheral [None]
  - Anaemia [None]
  - Blood creatinine increased [None]
  - Hyponatraemia [None]
  - Malaise [None]
  - Fatigue [None]
  - Asthenia [None]
  - Off label use [None]

NARRATIVE: CASE EVENT DATE: 20220601
